FAERS Safety Report 6105587-9 (Version None)
Quarter: 2009Q1

REPORT INFORMATION
  Report Type: 
  Country: None (occurrence: None)
  Receive Date: 20090306
  Receipt Date: 20090226
  Transmission Date: 20090719
  Serious: Yes (Other)
  Sender: FDA-Public Use
  Company Number: US-BAYER-200914224NA

PATIENT
  Age: 43 Year
  Sex: Female
  Weight: 65 kg

DRUGS (1)
  1. MAGNEVIST [Suspect]
     Indication: CARDIAC HYPERTROPHY
     Dosage: TOTAL DAILY DOSE: 16 ML  UNIT DOSE: 100 ML
     Route: 042
     Dates: start: 20090226, end: 20090226

REACTIONS (4)
  - BURNING SENSATION [None]
  - DYSPNOEA [None]
  - ERYTHEMA [None]
  - RASH PRURITIC [None]
